FAERS Safety Report 5312769-2 (Version None)
Quarter: 2007Q2

REPORT INFORMATION
  Report Type: 
  Country: None (occurrence: None)
  Receive Date: 20070430
  Receipt Date: 20070424
  Transmission Date: 20071010
  Serious: Yes (Death)
  Sender: FDA-Public Use
  Company Number: CA-BOEHRINGER INGELHEIM PHARMACEUTICALS, INC.-2007-CN-00351CN

PATIENT
  Sex: Male

DRUGS (1)
  1. MICARDIS [Suspect]
     Dates: start: 20061020, end: 20070301

REACTIONS (1)
  - DEATH [None]
